FAERS Safety Report 4768768-2 (Version None)
Quarter: 2005Q3

REPORT INFORMATION
  Report Type: 
  Country: None (occurrence: None)
  Receive Date: 20050914
  Receipt Date: 20050902
  Transmission Date: 20060218
  Serious: Yes (Hospitalization, Congenital Anomaly)
  Sender: FDA-Public Use
  Company Number: DK-BRISTOL-MYERS SQUIBB COMPANY-13105960

PATIENT
  Age: 26 Year
  Sex: Female

DRUGS (1)
  1. SINEMET [Suspect]
     Indication: DYSTONIA
     Dosage: DOSAGE: 25MG/100MG
     Route: 048

REACTIONS (3)
  - ABORTION INDUCED [None]
  - ENCEPHALOCELE [None]
  - PREGNANCY [None]
